FAERS Safety Report 5800175-3 (Version None)
Quarter: 2008Q3

REPORT INFORMATION
  Report Type: 
  Country: None (occurrence: None)
  Receive Date: 20080702
  Receipt Date: 20080702
  Transmission Date: 20090109
  Serious: No
  Sender: FDA-Public Use
  Company Number: None

PATIENT
  Sex: Male

DRUGS (1)
  1. DIGITEK 0.125MG BERTEK [Suspect]
     Indication: CARDIAC FAILURE
     Dosage: TAKE 1 TABLET DAILY
     Dates: start: 19920101

REACTIONS (4)
  - PALPITATIONS [None]
  - VISION BLURRED [None]
  - VISUAL ACUITY REDUCED [None]
  - VISUAL IMPAIRMENT [None]
